FAERS Safety Report 5424279-2 (Version None)
Quarter: 2007Q3

REPORT INFORMATION
  Report Type: 
  Country: None (occurrence: None)
  Receive Date: 20070823
  Receipt Date: 20070808
  Transmission Date: 20080115
  Serious: No
  Sender: FDA-Public Use
  Company Number: US-BOEHRINGER INGELHEIM PHARMACEUTICALS, INC.-2007-BP-18839BP

PATIENT
  Sex: Female

DRUGS (14)
  1. SPIRIVA [Suspect]
     Indication: CHRONIC OBSTRUCTIVE PULMONARY DISEASE
     Route: 055
     Dates: start: 20070201
  2. BENICAR [Concomitant]
  3. ATENOLOL [Concomitant]
     Indication: HYPERTENSION
  4. CYMBALTA [Concomitant]
     Indication: DEPRESSION
  5. EFFEXOR [Concomitant]
     Indication: DEPRESSION
  6. BAYER [Concomitant]
  7. LEVSINEX [Concomitant]
  8. DYAZIDE [Concomitant]
  9. PRILOSEC [Concomitant]
  10. LEVOXYL [Concomitant]
     Indication: HYPERTHYROIDISM
  11. CARDIZEM [Concomitant]
  12. TRAZODONE HCL [Concomitant]
  13. LIPITOR [Concomitant]
  14. VICODIN [Concomitant]

REACTIONS (3)
  - DRUG INEFFECTIVE [None]
  - DYSGEUSIA [None]
  - DYSPNOEA [None]
